FAERS Safety Report 9709896 (Version 1)
Quarter: 2013Q4

REPORT INFORMATION
  Report Type: Spontaneous
  Country: US (occurrence: US)
  Receive Date: 20131126
  Receipt Date: 20131126
  Transmission Date: 20140711
  Serious: No
  Sender: FDA-Public Use
  Company Number: US-PFIZER INC-2013336050

PATIENT
  Age: 44 Year
  Sex: Female
  Weight: 59.41 kg

DRUGS (3)
  1. LYRICA [Suspect]
     Indication: PAIN IN EXTREMITY
     Dosage: 75 MG, 1X/DAY
     Route: 048
     Dates: start: 2013, end: 20131117
  2. LYRICA [Suspect]
     Indication: RESTLESS LEGS SYNDROME
  3. METFORMIN [Concomitant]
     Dosage: UNK

REACTIONS (4)
  - Off label use [Unknown]
  - Pain in extremity [Unknown]
  - Gait disturbance [Unknown]
  - Activities of daily living impaired [Unknown]
